FAERS Safety Report 9889774 (Version 9)
Quarter: 2015Q3

REPORT INFORMATION
  Report Type: Report from Study
  Country: CA (occurrence: CA)
  Receive Date: 20140212
  Receipt Date: 20150819
  Transmission Date: 20151125
  Serious: Yes (Hospitalization, Other)
  Sender: FDA-Public Use
  Company Number: CA-ROCHE-1341675

PATIENT
  Age: 60 Year
  Sex: Female
  Weight: 97.5 kg

DRUGS (12)
  1. CYCLOSPORIN [Concomitant]
     Active Substance: CYCLOSPORINE
     Dosage: TO D/C WHEN STARTS ACTEMRA
     Route: 065
  2. GABAPENTIN. [Concomitant]
     Active Substance: GABAPENTIN
     Indication: FIBROMYALGIA
     Dosage: TO D/C WHEN STARTS ACTEMRA
     Route: 065
  3. ACTEMRA [Suspect]
     Active Substance: TOCILIZUMAB
     Indication: MICROCYTIC ANAEMIA
     Route: 042
     Dates: start: 20131204
  4. METHYLPREDNISOLONE. [Concomitant]
     Active Substance: METHYLPREDNISOLONE
     Indication: PREMEDICATION
     Route: 042
     Dates: start: 20130220, end: 20130306
  5. METHOTREXATE [Suspect]
     Active Substance: METHOTREXATE
     Indication: PRODUCT USED FOR UNKNOWN INDICATION
     Route: 065
  6. ACETAMINOPHEN. [Concomitant]
     Active Substance: ACETAMINOPHEN
     Indication: PREMEDICATION
     Route: 048
     Dates: start: 20130220, end: 20130306
  7. PAMIDRONATE [Concomitant]
     Active Substance: PAMIDRONATE DISODIUM
     Dosage: TO D/C WHEN STARTS ACTEMRA
     Route: 065
  8. EFFEXOR [Concomitant]
     Active Substance: VENLAFAXINE HYDROCHLORIDE
     Indication: MENTAL DISORDER
     Dosage: TO D/C WHEN STARTS ACTEMRA
     Route: 065
  9. NEXIUM [Concomitant]
     Active Substance: ESOMEPRAZOLE MAGNESIUM
     Dosage: TO D/C WHEN STARTS ACTEMRA
     Route: 065
  10. AMLODIPINE [Concomitant]
     Active Substance: AMLODIPINE BESYLATE
     Dosage: TO D/C WHEN STARTS ACTEMRA
     Route: 065
  11. ACTEMRA [Suspect]
     Active Substance: TOCILIZUMAB
     Indication: RHEUMATOID ARTHRITIS
     Route: 042
     Dates: start: 20130716
  12. RITUXAN [Suspect]
     Active Substance: RITUXIMAB
     Indication: RHEUMATOID ARTHRITIS
     Dosage: FREQUENCY: DAY 1 AND DAY 15
     Route: 042
     Dates: start: 20130220, end: 20130306

REACTIONS (22)
  - Weight loss poor [Not Recovered/Not Resolved]
  - Headache [Not Recovered/Not Resolved]
  - Blister [Unknown]
  - Deep vein thrombosis [Unknown]
  - Cyst rupture [Unknown]
  - Oedema peripheral [Unknown]
  - Ulcer [Unknown]
  - Alopecia [Unknown]
  - Pulmonary thrombosis [Unknown]
  - Arthralgia [Unknown]
  - Weight increased [Unknown]
  - Off label use [Unknown]
  - Pharyngitis [Unknown]
  - Thyroid disorder [Unknown]
  - Neck pain [Not Recovered/Not Resolved]
  - Pulmonary oedema [Unknown]
  - Influenza [Unknown]
  - Depression [Unknown]
  - Blister [Unknown]
  - Drug ineffective [Unknown]
  - Infection [Unknown]
  - Plantar fasciitis [Recovering/Resolving]

NARRATIVE: CASE EVENT DATE: 201411
